FAERS Safety Report 19201525 (Version 13)
Quarter: 2023Q4

REPORT INFORMATION
  Report Type: Report from Study
  Country: CN (occurrence: CN)
  Receive Date: 20210430
  Receipt Date: 20231012
  Transmission Date: 20240110
  Serious: Yes (Other)
  Sender: FDA-Public Use
  Company Number: CN-TAKEDA-2021TUS006389

PATIENT
  Age: 59 Year
  Sex: Male
  Weight: 52 kg

DRUGS (16)
  1. IXAZOMIB [Suspect]
     Active Substance: IXAZOMIB
     Indication: Plasma cell myeloma
     Dosage: 4 MILLIGRAM, 1/WEEK
     Route: 048
     Dates: start: 20201104
  2. CALCIUM POLYSTYRENE SULFONATE [Concomitant]
     Active Substance: CALCIUM POLYSTYRENE SULFONATE
     Indication: Hyperkalaemia
     Dosage: 5 MILLIGRAM
     Route: 048
     Dates: start: 20210119
  3. AMINO ACIDS [Concomitant]
     Active Substance: AMINO ACIDS
     Indication: Renal disorder prophylaxis
     Dosage: UNK UNK, TID
     Route: 048
     Dates: start: 202005
  4. ACYCLOVIR [Concomitant]
     Active Substance: ACYCLOVIR
     Indication: Antiviral prophylaxis
     Dosage: 0.2 GRAM, BID
     Route: 048
     Dates: start: 202006
  5. ONDANSETRON HYDROCHLORIDE [Concomitant]
     Active Substance: ONDANSETRON HYDROCHLORIDE
     Indication: Antiemetic supportive care
     Dosage: 4 MILLIGRAM, 1/WEEK
     Route: 048
     Dates: start: 20201103
  6. CALCIUM CARBONATE\CHOLECALCIFEROL [Concomitant]
     Active Substance: CALCIUM CARBONATE\CHOLECALCIFEROL
     Indication: Osteoporosis
     Dosage: 600 MILLIGRAM, QD
     Route: 048
     Dates: start: 202006
  7. OLMESARTAN [Concomitant]
     Active Substance: OLMESARTAN
     Indication: Hypertension
     Dosage: 200 MILLIGRAM, QD
     Route: 048
     Dates: start: 2020
  8. CLONIDINE HYDROCHLORIDE [Concomitant]
     Active Substance: CLONIDINE HYDROCHLORIDE
     Indication: Hypertension
     Dosage: 150 MICROGRAM, QD
     Route: 048
     Dates: start: 2020
  9. LABETALOL HYDROCHLORIDE [Concomitant]
     Active Substance: LABETALOL HYDROCHLORIDE
     Indication: Hypertension
     Dosage: 100 MILLIGRAM, QD
     Route: 048
     Dates: start: 2020
  10. CLOPIDOGREL BISULFATE [Concomitant]
     Active Substance: CLOPIDOGREL BISULFATE
     Indication: Anticoagulant therapy
     Dosage: 75 MILLIGRAM, QD
     Route: 048
     Dates: start: 2020
  11. EZETIMIBE [Concomitant]
     Active Substance: EZETIMIBE
     Indication: Hypercholesterolaemia
     Dosage: 10 MILLIGRAM, QD
     Route: 048
     Dates: start: 2020
  12. METHYLCOBALAMIN [Concomitant]
     Active Substance: METHYLCOBALAMIN
     Indication: Nerve injury
     Dosage: 0.5 MILLIGRAM, TID
     Route: 048
     Dates: start: 2020
  13. JIN SHUI BAO [Concomitant]
     Indication: Prophylaxis
     Dosage: 1.26 GRAM, TID
     Route: 048
     Dates: start: 2020
  14. Shen shuai ning [Concomitant]
     Indication: Prophylaxis
     Dosage: 1.08 GRAM, TID
     Route: 048
     Dates: start: 2020
  15. NIFEDIPINE [Concomitant]
     Active Substance: NIFEDIPINE
     Indication: Hypertension
     Dosage: 30 MILLIGRAM, BID
     Route: 048
     Dates: start: 2020
  16. ATORVASTATIN [Concomitant]
     Active Substance: ATORVASTATIN
     Indication: Lipids decreased
     Dosage: 10 MILLIGRAM, QD
     Route: 048
     Dates: start: 2020

REACTIONS (10)
  - Hyperkalaemia [Recovered/Resolved]
  - White blood cell count increased [Recovered/Resolved]
  - Monocyte count increased [Recovered/Resolved]
  - Eosinophil count increased [Recovered/Resolved]
  - Basophil count increased [Recovered/Resolved]
  - Lymphocyte count decreased [Recovered/Resolved]
  - Platelet count decreased [Not Recovered/Not Resolved]
  - Oedema [Not Recovered/Not Resolved]
  - Rash [Recovered/Resolved]
  - Off label use [Unknown]

NARRATIVE: CASE EVENT DATE: 20201104
